FAERS Safety Report 8370926-5 (Version None)
Quarter: 2012Q2

REPORT INFORMATION
  Report Type: 
  Country: None (occurrence: None)
  Receive Date: 20120518
  Receipt Date: 20111215
  Transmission Date: 20120825
  Serious: No
  Sender: FDA-Public Use
  Company Number: US-BAUSCH-2011BL008906

PATIENT
  Age: 64 Year
  Sex: Male

DRUGS (2)
  1. IPRATROPIUM BROMIDE [Suspect]
     Indication: UPPER-AIRWAY COUGH SYNDROME
     Route: 045
     Dates: start: 20111214, end: 20111215
  2. IPRATROPIUM BROMIDE [Suspect]
     Indication: OFF LABEL USE
     Route: 045
     Dates: start: 20111214, end: 20111215

REACTIONS (6)
  - CHEST DISCOMFORT [None]
  - DIZZINESS [None]
  - PAIN IN EXTREMITY [None]
  - EYE PAIN [None]
  - DYSPNOEA [None]
  - PERIPHERAL COLDNESS [None]
